FAERS Safety Report 6314041-0 (Version None)
Quarter: 2009Q3

REPORT INFORMATION
  Report Type: 
  Country: None (occurrence: None)
  Receive Date: 20090814
  Receipt Date: 20090731
  Transmission Date: 20100115
  Serious: Yes (Hospitalization)
  Sender: FDA-Public Use
  Company Number: 8047457

PATIENT
  Age: 64 Year
  Sex: Male

DRUGS (3)
  1. PREDNISOLONE [Suspect]
     Indication: IMMUNOSUPPRESSION
  2. AZATHIOPRINE [Suspect]
     Indication: IMMUNOSUPPRESSION
  3. TACROLIMUS [Suspect]
     Indication: RENAL TRANSPLANT

REACTIONS (9)
  - BLOOD ALKALINE PHOSPHATASE INCREASED [None]
  - BLOOD BILIRUBIN INCREASED [None]
  - CHOLECYSTITIS INFECTIVE [None]
  - CYTOMEGALOVIRUS INFECTION [None]
  - GALLBLADDER NECROSIS [None]
  - HAEMOBILIA [None]
  - HEPATIC HAEMATOMA [None]
  - INFECTION IN AN IMMUNOCOMPROMISED HOST [None]
  - SMALL INTESTINAL OBSTRUCTION [None]
